FAERS Safety Report 5292605-3 (Version None)
Quarter: 2007Q2

REPORT INFORMATION
  Report Type: 
  Country: None (occurrence: None)
  Receive Date: 20070404
  Receipt Date: 20070323
  Transmission Date: 20071010
  Serious: Yes (Hospitalization)
  Sender: FDA-Public Use
  Company Number: GXKR2007GB02808

PATIENT
  Age: 89 Year
  Sex: Male
  Weight: 85 kg

DRUGS (7)
  1. CO-CODAMOL (NGX) (ACETAMINOPHEN (PARACETAMOL), CODEINE PHOSPHATE) UNKN [Suspect]
     Dates: start: 20061122, end: 20061123
  2. DICLOFENAC SODIUM [Suspect]
     Indication: BACK PAIN
     Dosage: ORAL
     Route: 048
     Dates: start: 20061122, end: 20061123
  3. DILTIAZEM HCL [Concomitant]
  4. ASPIRIN [Concomitant]
  5. GLYCERYL TRINITRATE (GLYCERYL TRINITRATE) [Concomitant]
  6. SIMVASTATIN [Concomitant]
  7. LEVOTHYROXINE SODIUM [Concomitant]

REACTIONS (3)
  - DERMATOMYOSITIS [None]
  - OEDEMA [None]
  - OEDEMA PERIPHERAL [None]
